FAERS Safety Report 12971110 (Version 1)
Quarter: 2016Q4

REPORT INFORMATION
  Report Type: Report from Study
  Country: FR (occurrence: FR)
  Receive Date: 20161123
  Receipt Date: 20161123
  Transmission Date: 20170207
  Serious: Yes (Other)
  Sender: FDA-Public Use
  Company Number: FR-JAZZ-JPI-P-018676

PATIENT
  Age: 48 Year
  Sex: Female
  Weight: 73 kg

DRUGS (32)
  1. XYREM [Suspect]
     Active Substance: SODIUM OXYBATE
     Indication: NARCOLEPSY
     Dosage: 2.25 G, BID
     Route: 048
     Dates: start: 20111024, end: 20111107
  2. XYREM [Suspect]
     Active Substance: SODIUM OXYBATE
     Dosage: 4.5 G, BID
     Route: 048
     Dates: start: 20120621, end: 20120624
  3. XYREM [Suspect]
     Active Substance: SODIUM OXYBATE
     Dosage: 6 G, FIRST DOSE
     Route: 048
     Dates: start: 20131130, end: 20140703
  4. XYREM [Suspect]
     Active Substance: SODIUM OXYBATE
     Dosage: 6 G, FIRST DOSE
     Route: 048
     Dates: start: 20150228, end: 2015
  5. XYREM [Suspect]
     Active Substance: SODIUM OXYBATE
     Dosage: 3.75 G, BID
     Route: 048
     Dates: start: 20120726, end: 20120801
  6. XYREM [Suspect]
     Active Substance: SODIUM OXYBATE
     Dosage: 3 G, SECOND DOSE
     Route: 048
     Dates: start: 20131130, end: 20140703
  7. XYREM [Suspect]
     Active Substance: SODIUM OXYBATE
     Dosage: UNKNOWN DOSE
     Route: 048
     Dates: start: 20140704, end: 20140727
  8. XYREM [Suspect]
     Active Substance: SODIUM OXYBATE
     Dosage: 6 G, FIRST DOSE
     Route: 048
     Dates: start: 20140728, end: 20140827
  9. XYREM [Suspect]
     Active Substance: SODIUM OXYBATE
     Dosage: 4 G, SECOND DOSE
     Route: 048
     Dates: start: 20150129, end: 20150227
  10. XYREM [Suspect]
     Active Substance: SODIUM OXYBATE
     Dosage: 2.5 G, BID
     Route: 048
     Dates: start: 20120606, end: 20120609
  11. XYREM [Suspect]
     Active Substance: SODIUM OXYBATE
     Indication: CATAPLEXY
     Dosage: 3.0 G, BID
     Route: 048
     Dates: start: 20111108, end: 20111223
  12. XYREM [Suspect]
     Active Substance: SODIUM OXYBATE
     Dosage: 3.0 G, FIRST DOSE
     Route: 048
     Dates: start: 20130914, end: 20131129
  13. XYREM [Suspect]
     Active Substance: SODIUM OXYBATE
     Dosage: 4.5 G, BID
     Route: 048
     Dates: start: 20150411
  14. EFFEXOR [Concomitant]
     Active Substance: VENLAFAXINE HYDROCHLORIDE
     Indication: CATAPLEXY
  15. XYREM [Suspect]
     Active Substance: SODIUM OXYBATE
     Dosage: 4.5 G, BID
     Route: 048
     Dates: start: 20111224, end: 20120604
  16. XYREM [Suspect]
     Active Substance: SODIUM OXYBATE
     Dosage: 3.0 G, TID
     Route: 048
     Dates: start: 20120912
  17. XYREM [Suspect]
     Active Substance: SODIUM OXYBATE
     Dosage: 6.0 G, SECOND DOSE
     Route: 048
     Dates: start: 20130914, end: 20131129
  18. XYREM [Suspect]
     Active Substance: SODIUM OXYBATE
     Dosage: UNKNOWN DOSE, UNKNOWN
     Route: 048
     Dates: end: 20150128
  19. CYMBALTA [Concomitant]
     Active Substance: DULOXETINE HYDROCHLORIDE
     Indication: PRODUCT USED FOR UNKNOWN INDICATION
     Dosage: 60 MG, SINGLE
  20. XYREM [Suspect]
     Active Substance: SODIUM OXYBATE
     Dosage: 3.0 G, BID
     Route: 048
     Dates: start: 20120610, end: 20120614
  21. XYREM [Suspect]
     Active Substance: SODIUM OXYBATE
     Dosage: 3.75 G, BID
     Route: 048
     Dates: start: 20120625, end: 20120723
  22. XYREM [Suspect]
     Active Substance: SODIUM OXYBATE
     Dosage: 4.5 G, BID
     Dates: start: 20120802, end: 20120911
  23. XYREM [Suspect]
     Active Substance: SODIUM OXYBATE
     Dosage: 4.5 G, BID
     Route: 048
     Dates: start: 20130515, end: 20130913
  24. XYREM [Suspect]
     Active Substance: SODIUM OXYBATE
     Dosage: 3 G, SECOND DOSE
     Route: 048
     Dates: start: 20140728, end: 20140827
  25. XYREM [Suspect]
     Active Substance: SODIUM OXYBATE
     Dosage: 3.75 G, BID
     Route: 048
     Dates: start: 20120615, end: 20120620
  26. XYREM [Suspect]
     Active Substance: SODIUM OXYBATE
     Dosage: 4.5 G, BID
     Route: 048
     Dates: start: 20120724, end: 201207
  27. XYREM [Suspect]
     Active Substance: SODIUM OXYBATE
     Dosage: 4 G, SECOND DOSE
     Route: 048
     Dates: start: 20150401, end: 20150410
  28. EFFEXOR [Concomitant]
     Active Substance: VENLAFAXINE HYDROCHLORIDE
     Indication: NARCOLEPSY
     Dosage: 200 MG, 75 MF, 4 TABLETS DAILY
  29. XYREM [Suspect]
     Active Substance: SODIUM OXYBATE
     Dosage: 3.0 G, TID
     Route: 048
     Dates: start: 20130429, end: 20130514
  30. XYREM [Suspect]
     Active Substance: SODIUM OXYBATE
     Dosage: 6 G, FIRST DOSE
     Route: 048
     Dates: start: 20150129, end: 20150227
  31. XYREM [Suspect]
     Active Substance: SODIUM OXYBATE
     Dosage: 3 G, SECOND DOSE
     Route: 048
     Dates: start: 20150228, end: 2015
  32. XYREM [Suspect]
     Active Substance: SODIUM OXYBATE
     Dosage: 6 G, FIRST DOSE
     Route: 048
     Dates: start: 20150401, end: 20150410

REACTIONS (60)
  - Hypotonia [Unknown]
  - Bone pain [Unknown]
  - Asthenia [Recovered/Resolved]
  - Joint stiffness [Unknown]
  - Restless legs syndrome [Not Recovered/Not Resolved]
  - Feeling abnormal [Unknown]
  - Agitation [Unknown]
  - Irritability [Recovered/Resolved]
  - Arthralgia [Not Recovered/Not Resolved]
  - Amnesia [Not Recovered/Not Resolved]
  - Emotional disorder [Unknown]
  - Eye movement disorder [Not Recovered/Not Resolved]
  - Dizziness [Unknown]
  - Dry mouth [Unknown]
  - Overdose [Unknown]
  - Ligament sprain [Unknown]
  - Vomiting [Unknown]
  - Depressive symptom [Not Recovered/Not Resolved]
  - Pain [Not Recovered/Not Resolved]
  - Sleep apnoea syndrome [Not Recovered/Not Resolved]
  - Incontinence [Not Recovered/Not Resolved]
  - Hypersomnia [Unknown]
  - Sleep talking [Unknown]
  - Nervousness [Unknown]
  - Abdominal pain upper [Unknown]
  - Poor quality sleep [Not Recovered/Not Resolved]
  - Malaise [Recovered/Resolved]
  - Unevaluable event [Unknown]
  - Ligament sprain [Unknown]
  - Nightmare [Not Recovered/Not Resolved]
  - Somnolence [Not Recovered/Not Resolved]
  - Hallucination [Not Recovered/Not Resolved]
  - Muscle spasms [Not Recovered/Not Resolved]
  - Epicondylitis [Unknown]
  - Back pain [Not Recovered/Not Resolved]
  - Rheumatic disorder [Unknown]
  - Snoring [Unknown]
  - Vertigo [Unknown]
  - Speech disorder [Not Recovered/Not Resolved]
  - Eczema [Not Recovered/Not Resolved]
  - Eczema [Unknown]
  - Urticaria [Not Recovered/Not Resolved]
  - Headache [Not Recovered/Not Resolved]
  - Nausea [Not Recovered/Not Resolved]
  - Sudden onset of sleep [Unknown]
  - Chills [Unknown]
  - Irregular breathing [Recovered/Resolved]
  - Insomnia [Not Recovered/Not Resolved]
  - Nasal congestion [Not Recovered/Not Resolved]
  - Blood urine present [Unknown]
  - Oedema peripheral [Unknown]
  - Off label use [Unknown]
  - Cataplexy [Not Recovered/Not Resolved]
  - Hypoaesthesia [Unknown]
  - Incoherent [Not Recovered/Not Resolved]
  - Limb discomfort [Not Recovered/Not Resolved]
  - Fatigue [Not Recovered/Not Resolved]
  - Fall [Not Recovered/Not Resolved]
  - Pain in extremity [Not Recovered/Not Resolved]
  - Inappropriate schedule of drug administration [Unknown]

NARRATIVE: CASE EVENT DATE: 20111024
